FAERS Safety Report 19196568 (Version 1)
Quarter: 2021Q2

REPORT INFORMATION
  Report Type: Spontaneous
  Country: US (occurrence: US)
  Receive Date: 20210429
  Receipt Date: 20210429
  Transmission Date: 20210717
  Serious: No
  Sender: FDA-Public Use
  Company Number: US-GLAXOSMITHKLINE-USCH2021AMR021139

PATIENT
  Sex: Male

DRUGS (1)
  1. ADVIL [Suspect]
     Active Substance: IBUPROFEN
     Indication: INJECTION SITE PAIN
     Dosage: UNK

REACTIONS (4)
  - Aphonia [Recovered/Resolved]
  - Hypersensitivity [Recovering/Resolving]
  - Lip swelling [Unknown]
  - Product use issue [Unknown]
